FAERS Safety Report 5838299-7 (Version None)
Quarter: 2008Q3

REPORT INFORMATION
  Report Type: 
  Country: None (occurrence: None)
  Receive Date: 20080808
  Receipt Date: 20080728
  Transmission Date: 20090109
  Serious: Yes (Hospitalization)
  Sender: FDA-Public Use
  Company Number: AU-BAYER-200823067GPV

PATIENT
  Age: 4 Year
  Sex: Male

DRUGS (1)
  1. ASPRO CLEAR [Suspect]
     Indication: DRUG USE FOR UNKNOWN INDICATION
     Route: 048
     Dates: start: 20080721, end: 20080721

REACTIONS (1)
  - MALAISE [None]
